FAERS Safety Report 5398244-8 (Version None)
Quarter: 2007Q3

REPORT INFORMATION
  Report Type: 
  Country: None (occurrence: None)
  Receive Date: 20070726
  Receipt Date: 20070723
  Transmission Date: 20080115
  Serious: Yes (Hospitalization)
  Sender: FDA-Public Use
  Company Number: US-BOEHRINGER INGELHEIM PHARMACEUTICALS, INC.-2007-BP-17889BP

PATIENT
  Sex: Female

DRUGS (1)
  1. MIRAPEX [Suspect]
     Indication: RESTLESS LEGS SYNDROME
     Route: 048
     Dates: start: 20050101

REACTIONS (12)
  - CHEST CRUSHING [None]
  - CHEST PAIN [None]
  - DEFORMITY [None]
  - DEFORMITY THORAX [None]
  - HAEMOTHORAX [None]
  - HEAD INJURY [None]
  - HUMERUS FRACTURE [None]
  - PNEUMOTHORAX [None]
  - RIB FRACTURE [None]
  - ROAD TRAFFIC ACCIDENT [None]
  - ROTATOR CUFF SYNDROME [None]
  - TOOTH INJURY [None]
